FAERS Safety Report 7238148-9 (Version None)
Quarter: 2011Q1

REPORT INFORMATION
  Report Type: 
  Country: None (occurrence: None)
  Receive Date: 20110119
  Receipt Date: 20110119
  Transmission Date: 20110831
  Serious: No
  Sender: FDA-Public Use
  Company Number: None

PATIENT
  Age: 61 Year
  Sex: Male
  Weight: 80.9 kg

DRUGS (2)
  1. INSULIN [Suspect]
     Indication: DIABETES MELLITUS
     Dosage: ML SQ
     Route: 058
     Dates: start: 20100909
  2. INSULIN [Suspect]
     Indication: DIABETES MELLITUS
     Dosage: 30 UNITS EVERY DAY SQ
     Route: 058
     Dates: start: 20100831, end: 20101012

REACTIONS (2)
  - MYALGIA [None]
  - PAIN IN EXTREMITY [None]
